FAERS Safety Report 5143457-3 (Version None)
Quarter: 2006Q4

REPORT INFORMATION
  Report Type: 
  Country: None (occurrence: None)
  Receive Date: 20061101
  Receipt Date: 20061101
  Transmission Date: 20070319
  Serious: No
  Sender: FDA-Public Use
  Company Number: None

PATIENT
  Sex: Female
  Weight: 54.4316 kg

DRUGS (2)
  1. SERTRALINE [Suspect]
     Dosage: 1/2 TAB  DAILY  PO
     Route: 048
     Dates: start: 20061010, end: 20061018
  2. SERTRALINE [Suspect]
     Dosage: 1/2 TAB  DAILY  PO
     Route: 048
     Dates: start: 20061010, end: 20061018

REACTIONS (4)
  - DIZZINESS [None]
  - DYSGEUSIA [None]
  - NAUSEA [None]
  - PHARMACEUTICAL PRODUCT COMPLAINT [None]
